FAERS Safety Report 9037131 (Version 1)
Quarter: 2013Q1

REPORT INFORMATION
  Report Type: Report from Study
  Country: US (occurrence: US)
  Receive Date: 20130129
  Receipt Date: 20130129
  Transmission Date: 20140127
  Serious: No
  Sender: FDA-Public Use
  Company Number: US-ABBOTT-11P-163-0887727-00

PATIENT
  Age: 35 Year
  Sex: Female

DRUGS (7)
  1. HUMIRA 40 MG/0.8 ML PEN [Suspect]
     Indication: PSORIASIS
     Dates: start: 20111107, end: 20111107
  2. HUMIRA 40 MG/0.8 ML PEN [Suspect]
     Dates: start: 20111115
  3. CLOBETAZOLE [Concomitant]
     Indication: PSORIASIS
  4. VIT D [Concomitant]
     Indication: OSTEOARTHRITIS
     Dosage: WEEKLY
  5. FLU SHOT [Concomitant]
     Indication: PRODUCT USED FOR UNKNOWN INDICATION
  6. PNEUMONIA SHOT [Concomitant]
     Indication: PRODUCT USED FOR UNKNOWN INDICATION
  7. UNKNOWN MEDICATIONS [Concomitant]
     Indication: PRODUCT USED FOR UNKNOWN INDICATION

REACTIONS (12)
  - Injection site papule [Not Recovered/Not Resolved]
  - Injection site erythema [Unknown]
  - Rash generalised [Not Recovered/Not Resolved]
  - Influenza like illness [Unknown]
  - Nasopharyngitis [Unknown]
  - Rhinorrhoea [Unknown]
  - Increased upper airway secretion [Unknown]
  - Rash generalised [Not Recovered/Not Resolved]
  - Psoriasis [Not Recovered/Not Resolved]
  - Psoriasis [Not Recovered/Not Resolved]
  - Inflammation [Not Recovered/Not Resolved]
  - Pain [Not Recovered/Not Resolved]
